FAERS Safety Report 19381645 (Version 1)
Quarter: 2021Q2

REPORT INFORMATION
  Report Type: Spontaneous
  Country: US (occurrence: US)
  Receive Date: 20210605
  Receipt Date: 20210605
  Transmission Date: 20210717
  Serious: Yes (Hospitalization)
  Sender: FDA-Public Use
  Company Number: None

PATIENT
  Age: 81 Year
  Sex: Female
  Weight: 72.12 kg

DRUGS (8)
  1. LEUCOVORIN CALCIUM. [Suspect]
     Active Substance: LEUCOVORIN CALCIUM
     Dates: end: 20210506
  2. OXYCODONE [Concomitant]
     Active Substance: OXYCODONE
  3. IRINOTECAN LIPOSOME (MM?398, ONIVYDE) [Suspect]
     Active Substance: IRINOTECAN HYDROCHLORIDE
     Dates: end: 20210506
  4. FENTANYL. [Concomitant]
     Active Substance: FENTANYL
  5. CREON [Concomitant]
     Active Substance: PANCRELIPASE AMYLASE\PANCRELIPASE LIPASE\PANCRELIPASE PROTEASE
  6. PREDNISONE. [Concomitant]
     Active Substance: PREDNISONE
  7. 5?FLUOROURACIL (5?FU) [Suspect]
     Active Substance: FLUOROURACIL
     Dates: end: 20210506
  8. LOPERAMIDE [Concomitant]
     Active Substance: LOPERAMIDE

REACTIONS (8)
  - Gastric dilatation [None]
  - Vomiting [None]
  - Abdominal pain [None]
  - Diarrhoea [None]
  - Asthenia [None]
  - Ileus paralytic [None]
  - Abdominal distension [None]
  - Small intestinal obstruction [None]

NARRATIVE: CASE EVENT DATE: 20210527
